FAERS Safety Report 6867195-1 (Version None)
Quarter: 2010Q3

REPORT INFORMATION
  Report Type: 
  Country: None (occurrence: None)
  Receive Date: 20100722
  Receipt Date: 20100722
  Transmission Date: 20110219
  Serious: Yes (Other)
  Sender: FDA-Public Use
  Company Number: None

PATIENT
  Sex: Female
  Weight: 64.8644 kg

DRUGS (1)
  1. AGGRENOX [Suspect]
     Indication: CEREBROVASCULAR ACCIDENT PROPHYLAXIS
     Dosage: 1 CAPSULE 2 X DAY
     Dates: start: 20070601, end: 20100601

REACTIONS (3)
  - BONE DISORDER [None]
  - CENTRAL NERVOUS SYSTEM LESION [None]
  - SPINAL DISORDER [None]
